FAERS Safety Report 9522731 (Version 1)
Quarter: 2013Q3

REPORT INFORMATION
  Report Type: Spontaneous
  Country: US (occurrence: None)
  Receive Date: 20130827
  Receipt Date: 20130827
  Transmission Date: 20140515
  Serious: Yes (Hospitalization)
  Sender: FDA-Public Use
  Company Number: 2013027479

PATIENT
  Age: 16 Year
  Sex: Female

DRUGS (2)
  1. PRIVIGEN [Suspect]
     Indication: IMMUNE THROMBOCYTOPENIC PURPURA
     Dosage: INTRAVENOUS (NOT OTHERWISE INDICATED)
     Route: 042
     Dates: start: 20130802, end: 20130802
  2. CORTICOSTEROIDS (CORTICOSTEROIDS) [Concomitant]

REACTIONS (2)
  - Meningeal disorder [None]
  - Meningitis aseptic [None]
